FAERS Safety Report 9812667 (Version 1)
Quarter: 2014Q1

REPORT INFORMATION
  Report Type: Report from Study
  Country: US (occurrence: US)
  Receive Date: 20140113
  Receipt Date: 20140113
  Transmission Date: 20141002
  Serious: Yes (Other)
  Sender: FDA-Public Use
  Company Number: US-ROCHE-1331705

PATIENT
  Sex: Female
  Weight: 129.2 kg

DRUGS (14)
  1. XOLAIR [Suspect]
     Indication: ASTHMA
     Route: 058
     Dates: start: 20110330
  2. NAPROXEN [Suspect]
     Indication: PRODUCT USED FOR UNKNOWN INDICATION
     Route: 065
  3. ALBUTEROL [Concomitant]
     Indication: DYSPNOEA
     Dosage: 2 PUFFS ?MOST RECENT DOSE ON 04/JAN/2014
     Route: 065
     Dates: start: 20100923
  4. ALBUTEROL [Concomitant]
     Indication: COUGH
  5. CHLORPHENIRAMINE MALEATE [Concomitant]
     Route: 065
     Dates: start: 20130402
  6. PROVENTIL HFA [Concomitant]
     Dosage: 2 PUFFS EVERY 4 TO 6 HOURS
     Route: 048
     Dates: start: 20130220, end: 20131003
  7. SYMBICORT [Concomitant]
     Dosage: 160-4.5 MCG/ACT 2 PUFFS
     Route: 055
     Dates: start: 20131003, end: 20131003
  8. XANAX [Concomitant]
     Route: 048
     Dates: start: 20100923
  9. ZYRTEC [Concomitant]
     Indication: HYPERSENSITIVITY
     Route: 048
     Dates: start: 20120724
  10. ALLEGRA [Concomitant]
     Route: 048
     Dates: start: 20130402
  11. TYLENOL [Concomitant]
     Route: 065
     Dates: start: 20100923
  12. EPIPEN 2-PAK [Concomitant]
     Dosage: 0.3 MG/0.3 ML
     Route: 030
     Dates: start: 20120417, end: 20120417
  13. FERROUS SULFATE [Concomitant]
     Dosage: 325 (65 FE) MG
     Route: 048
     Dates: start: 20110815
  14. MONTELUKAST SODIUM [Concomitant]
     Dosage: 1 TABLET AT BEDTIME
     Route: 048
     Dates: end: 20130218

REACTIONS (27)
  - Anaphylactic reaction [Unknown]
  - Cerumen impaction [Unknown]
  - Uterine leiomyoma [Unknown]
  - Menorrhagia [Unknown]
  - Obesity [Unknown]
  - Otitis media acute [Unknown]
  - Rhinorrhoea [Unknown]
  - Wheezing [Unknown]
  - Dysphagia [Unknown]
  - Increased upper airway secretion [Unknown]
  - Stridor [Unknown]
  - Nasal polyps [Unknown]
  - Laryngeal oedema [Unknown]
  - Laryngeal oedema [Unknown]
  - Laryngeal erythema [Unknown]
  - Rhinitis allergic [Unknown]
  - Analgesic asthma syndrome [Unknown]
  - Asthma [Unknown]
  - Chronic sinusitis [Unknown]
  - Mycotic allergy [Unknown]
  - Allergy to arthropod sting [Unknown]
  - Sinusitis [Unknown]
  - Bronchitis [Unknown]
  - Reflux laryngitis [Unknown]
  - Drug hypersensitivity [Unknown]
  - Sensation of foreign body [Unknown]
  - Allergy test positive [Unknown]
